FAERS Safety Report 16296207 (Version 1)
Quarter: 2019Q2

REPORT INFORMATION
  Report Type: Spontaneous
  Country: US (occurrence: US)
  Receive Date: 20190509
  Receipt Date: 20190509
  Transmission Date: 20190711
  Serious: Yes (Life-Threatening, Hospitalization, Disabling, Other)
  Sender: FDA-Public Use
  Company Number: None

PATIENT
  Age: 30 Year
  Sex: Female
  Weight: 49.5 kg

DRUGS (19)
  1. BACLOFEN PUMP [Concomitant]
     Active Substance: BACLOFEN
  2. LDN [Concomitant]
     Active Substance: NALTREXONE
  3. FLOUXETINE 60MG [Concomitant]
  4. SKIN [Concomitant]
  5. NAILS [Concomitant]
  6. LEMTRADA [Suspect]
     Active Substance: ALEMTUZUMAB
     Indication: RELAPSING MULTIPLE SCLEROSIS
     Route: 042
     Dates: start: 20170301, end: 20180301
  7. ADDERALL [Concomitant]
     Active Substance: AMPHETAMINE ASPARTATE\AMPHETAMINE SULFATE\DEXTROAMPHETAMINE SACCHARATE\DEXTROAMPHETAMINE SULFATE
  8. CALCIUM CITRATE MAGNESIUM AND ZINC [Concomitant]
  9. GILENYA [Concomitant]
     Active Substance: FINGOLIMOD HYDROCHLORIDE
  10. REPENEROL 3MG [Concomitant]
  11. STOOL SOFTENESS-SENA [Concomitant]
  12. AMPYRA [Concomitant]
     Active Substance: DALFAMPRIDINE
  13. AMINOPYRADINE 4 HPMG 10MG [Concomitant]
  14. TERMERIC CUR CUMIN [Concomitant]
  15. D4 VITAMIN [Concomitant]
  16. METHYL B-12 [Concomitant]
  17. OMG 3 FISH OIL [Concomitant]
  18. PROBIOTICS FOR WOMEN [Concomitant]
  19. HAIR [Concomitant]
     Active Substance: PYRITHIONE ZINC

REACTIONS (1)
  - Multiple sclerosis relapse [None]

NARRATIVE: CASE EVENT DATE: 20180704
